FAERS Safety Report 14794415 (Version 2)
Quarter: 2018Q3

REPORT INFORMATION
  Report Type: Spontaneous
  Country: BR (occurrence: BR)
  Receive Date: 20180423
  Receipt Date: 20180905
  Transmission Date: 20181010
  Serious: Yes (Other)
  Sender: FDA-Public Use
  Company Number: BR-JNJFOC-20180419898

PATIENT
  Age: 49 Year
  Sex: Female

DRUGS (3)
  1. REMICADE [Suspect]
     Active Substance: INFLIXIMAB
     Indication: ANKYLOSING SPONDYLITIS
     Route: 042
     Dates: start: 2016, end: 201709
  2. DOLAMIN FLEX [Concomitant]
     Active Substance: CLONIXIN\CYCLOBENZAPRINE
     Route: 065
  3. NEOSINE [Concomitant]
     Active Substance: INOSINE PRANOBEX
     Route: 065

REACTIONS (4)
  - Abdominal adhesions [Unknown]
  - Blood pressure increased [Recovered/Resolved]
  - Endometriosis [Unknown]
  - Infusion related reaction [Recovered/Resolved]

NARRATIVE: CASE EVENT DATE: 201709
